FAERS Safety Report 16294363 (Version 1)
Quarter: 2019Q2

REPORT INFORMATION
  Report Type: Spontaneous
  Country: US (occurrence: US)
  Receive Date: 20190509
  Receipt Date: 20190509
  Transmission Date: 20190711
  Serious: No
  Sender: FDA-Public Use
  Company Number: US-ROCHE-1967431

PATIENT
  Age: 72 Year
  Sex: Male
  Weight: 72.64 kg

DRUGS (9)
  1. METOPROLOL. [Concomitant]
     Active Substance: METOPROLOL
     Dosage: ONGOING: YES
     Route: 048
     Dates: start: 2014
  2. BABY ASPIRIN [Concomitant]
     Active Substance: ASPIRIN
     Dosage: ONGOING: YES
     Route: 048
     Dates: start: 2014
  3. CYMBALTA [Concomitant]
     Active Substance: DULOXETINE HYDROCHLORIDE
     Indication: DEPRESSION
     Dosage: ONGOING: YES
     Route: 048
     Dates: start: 2016
  4. ESBRIET [Suspect]
     Active Substance: PIRFENIDONE
     Dosage: 3 - 267MG CAPSULES 3 TIMES DAILY ;
     Route: 048
     Dates: start: 20170704
  5. CRESTOR [Concomitant]
     Active Substance: ROSUVASTATIN CALCIUM
     Indication: BLOOD CHOLESTEROL
     Dosage: ONGOING: YES
     Route: 048
     Dates: start: 1997
  6. PANTOPRAZOLE [Concomitant]
     Active Substance: PANTOPRAZOLE
     Indication: GASTROOESOPHAGEAL REFLUX DISEASE
     Dosage: ONGOING: YES
     Route: 048
  7. AMLODIPINE [Concomitant]
     Active Substance: AMLODIPINE BESYLATE
     Indication: BLOOD PRESSURE MEASUREMENT
     Dosage: ONGOING: YES
     Route: 048
  8. ESBRIET [Suspect]
     Active Substance: PIRFENIDONE
     Indication: IDIOPATHIC PULMONARY FIBROSIS
     Dosage: ONGOING: YES
     Route: 048
     Dates: start: 20170101
  9. ESBRIET [Suspect]
     Active Substance: PIRFENIDONE
     Route: 048
     Dates: start: 201707

REACTIONS (15)
  - Abdominal distension [Not Recovered/Not Resolved]
  - Gastrooesophageal reflux disease [Recovered/Resolved with Sequelae]
  - Nausea [Not Recovered/Not Resolved]
  - Insomnia [Recovered/Resolved]
  - Nausea [Recovered/Resolved with Sequelae]
  - Limb discomfort [Not Recovered/Not Resolved]
  - Dizziness [Recovered/Resolved with Sequelae]
  - Fatigue [Not Recovered/Not Resolved]
  - Decreased appetite [Not Recovered/Not Resolved]
  - Constipation [Recovered/Resolved with Sequelae]
  - Diarrhoea [Recovered/Resolved with Sequelae]
  - Headache [Not Recovered/Not Resolved]
  - Abdominal discomfort [Not Recovered/Not Resolved]
  - Head discomfort [Recovered/Resolved with Sequelae]
  - Abdominal pain upper [Recovered/Resolved]

NARRATIVE: CASE EVENT DATE: 20170601
